FAERS Safety Report 10752836 (Version 2)
Quarter: 2015Q2

REPORT INFORMATION
  Report Type: Report from Study
  Country: VE (occurrence: VE)
  Receive Date: 20150130
  Receipt Date: 20150615
  Transmission Date: 20150821
  Serious: Yes (Death, Hospitalization)
  Sender: FDA-Public Use
  Company Number: VE-ABBVIE-15K-178-1338916-00

PATIENT
  Age: 56 Year
  Sex: Male
  Weight: 66 kg

DRUGS (1)
  1. HUMIRA [Suspect]
     Active Substance: ADALIMUMAB
     Indication: RHEUMATOID ARTHRITIS
     Route: 058
     Dates: start: 201109, end: 20141108

REACTIONS (6)
  - Jaundice [Fatal]
  - Pyrexia [Fatal]
  - Renal impairment [Fatal]
  - Renal failure [Fatal]
  - Liver disorder [Fatal]
  - Cerebrovascular accident [Fatal]

NARRATIVE: CASE EVENT DATE: 20141107
